FAERS Safety Report 8816763 (Version 1)
Quarter: 2012Q4

REPORT INFORMATION
  Report Type: Spontaneous
  Country: US (occurrence: None)
  Receive Date: 20121001
  Receipt Date: 20121001
  Transmission Date: 20130627
  Serious: Yes (Hospitalization, Other)
  Sender: FDA-Public Use
  Company Number: 2012P1058893

PATIENT
  Age: 16 Year
  Sex: Female

DRUGS (3)
  1. EPINEPHRINE [Suspect]
     Indication: VASOCONSTRICTION
     Route: 058
     Dates: start: 201006, end: 201006
  2. 2% XYLOCAINE [Concomitant]
  3. UNSPECIFIED GENERAL ANESTHETICS [Concomitant]

REACTIONS (4)
  - Stress cardiomyopathy [None]
  - Blood pressure increased [None]
  - PO2 decreased [None]
  - Chest pain [None]
